FAERS Safety Report 7143928 (Version 5)
Quarter: 2013Q1

REPORT INFORMATION
  Report Type: Report from Study
  Country: ES (occurrence: ES)
  Receive Date: 20091008
  Receipt Date: 20130328
  Transmission Date: 20140127
  Serious: Yes (Hospitalization)
  Sender: FDA-Public Use
  Company Number: ES-ABBOTT-09P-144-0599649-00

PATIENT
  Age: 58 Year
  Sex: Male
  Weight: 75 kg

DRUGS (4)
  1. HUMIRA [Suspect]
     Indication: CROHN^S DISEASE
     Route: 058
     Dates: start: 20090714, end: 20090912
  2. HUMIRA [Suspect]
     Route: 058
     Dates: start: 20090912
  3. METHOTREXATE [Concomitant]
     Indication: CROHN^S DISEASE
     Dates: start: 20080108, end: 20100215
  4. CLAVERSAL [Concomitant]
     Indication: CROHN^S DISEASE
     Dates: start: 20070614, end: 20090910

REACTIONS (1)
  - Subileus [Recovered/Resolved]
